FAERS Safety Report 18100675 (Version 1)
Quarter: 2020Q3

REPORT INFORMATION
  Report Type: Spontaneous
  Country: DK (occurrence: DK)
  Receive Date: 20200731
  Receipt Date: 20200731
  Transmission Date: 20201103
  Serious: Yes (Other)
  Sender: FDA-Public Use
  Company Number: DK-JNJFOC-20200739872

PATIENT
  Age: 43 Year
  Sex: Female

DRUGS (7)
  1. TRAMADOL AUROBINDO [Concomitant]
     Active Substance: TRAMADOL HYDROCHLORIDE
     Indication: PAIN
     Dosage: STRENGTH: 50MG?ADDITIONAL INFO: START DATE UNKNOWN BUT AT LEAST SINCE JUL?2018
     Route: 048
  2. ROXIMSTAD [Concomitant]
     Active Substance: ROXITHROMYCIN
     Indication: HIDRADENITIS
     Dosage: STRENGTH: 150 MG?DOSAGE FORM: 82
     Route: 058
     Dates: start: 20190711
  3. VINELLE [Concomitant]
     Indication: ENDOMETRIOSIS
     Dosage: STRENGTH: 75MIKROGRAM
     Route: 048
     Dates: start: 20191024
  4. OXYCODONE [Concomitant]
     Active Substance: OXYCODONE
     Indication: PAIN
     Dosage: STRENGTH: 10MG?DOSAGE FORM: 212
     Route: 048
     Dates: start: 20200306
  5. STELARA [Suspect]
     Active Substance: USTEKINUMAB
     Indication: HIDRADENITIS
     Dosage: STRENGTH: 90 MG
     Route: 058
     Dates: start: 20200526, end: 20200623
  6. PANTOPRAZOLE SODIUM SESQUIHYDRATE [Concomitant]
     Active Substance: PANTOPRAZOLE SODIUM
     Indication: GASTROOESOPHAGEAL REFLUX DISEASE
     Dosage: DOSE: 1?2TABL EVERY EVENING?STRENGTH: 40MG?DOSAGE FORM: 94
     Route: 048
     Dates: start: 20180409
  7. ACICLODAN [Concomitant]
     Indication: HERPES VIRUS INFECTION
     Dosage: STRENGTH: 800 MG; AS REQUIRED?DOSAGE FORM: 245
     Route: 048
     Dates: start: 20171101

REACTIONS (3)
  - Off label use [Unknown]
  - Product use in unapproved indication [Unknown]
  - Epilepsy [Recovered/Resolved]

NARRATIVE: CASE EVENT DATE: 2020
